FAERS Safety Report 9834419 (Version 2)
Quarter: 2014Q1

REPORT INFORMATION
  Report Type: Spontaneous
  Country: IT (occurrence: IT)
  Receive Date: 20140122
  Receipt Date: 20140127
  Transmission Date: 20141002
  Serious: Yes (Hospitalization)
  Sender: FDA-Public Use
  Company Number: IT-TEVA-456445ISR

PATIENT
  Age: 77 Year
  Sex: Female

DRUGS (3)
  1. LEVOFLOXACIN [Suspect]
     Indication: BRONCHOPNEUMONIA
     Route: 048
     Dates: start: 20131213, end: 20131226
  2. CLARITHROMYCIN [Interacting]
     Indication: BRONCHOPNEUMONIA
     Route: 048
     Dates: start: 20131223, end: 20131226
  3. COUMADIN - 5 MG COMPRESSE - BRISTOL MYERS SQUIBB S.R.L. [Interacting]
     Indication: ATRIAL FIBRILLATION
     Route: 048
     Dates: start: 20100725, end: 20131226

REACTIONS (2)
  - Hypocoagulable state [Recovering/Resolving]
  - Drug interaction [Recovering/Resolving]
